FAERS Safety Report 6492628-2 (Version None)
Quarter: 2009Q4

REPORT INFORMATION
  Report Type: 
  Country: None (occurrence: None)
  Receive Date: 20091214
  Receipt Date: 20091209
  Transmission Date: 20100525
  Serious: Yes (Death, Hospitalization)
  Sender: FDA-Public Use
  Company Number: PHEH2009US17059

PATIENT
  Sex: Male

DRUGS (18)
  1. EXJADE [Suspect]
     Indication: MYELODYSPLASTIC SYNDROME
     Dosage: 500 MG DAILY
     Route: 048
     Dates: start: 20081028, end: 20091101
  2. EXJADE [Suspect]
     Indication: IRON OVERLOAD
     Dosage: 500 MG DAILY
     Route: 048
     Dates: start: 20091101
  3. CALCITRIOL [Concomitant]
     Indication: RENAL FAILURE
     Dosage: 0.25 MG/DAY
  4. EPOGEN [Concomitant]
     Indication: ANAEMIA
  5. COREG [Concomitant]
     Indication: HYPERTENSION
     Dosage: 3/2.5 BID
  6. GLIPIZIDE [Concomitant]
     Indication: DIABETES MELLITUS
     Dosage: 5 MG 1/2 DAILY
  7. LEXAPRO [Concomitant]
     Indication: DEPRESSION
     Dosage: 16 MG, UNK
  8. LIPITOR [Concomitant]
     Indication: BLOOD CHOLESTEROL INCREASED
     Dosage: 10 MG, UNK
  9. AERAZEPAM [Concomitant]
     Indication: ANXIETY
     Dosage: 0.5 MG, UNK
  10. POTASSIUM CHLORIDE [Concomitant]
     Dosage: 20 MEQ, UNK
  11. RENAL CAPS [Concomitant]
     Dosage: 1 MG, UNK
  12. ANADROL [Concomitant]
     Indication: MYELODYSPLASTIC SYNDROME
     Dosage: 50 DAILY
     Dates: start: 20090827, end: 20091101
  13. HYDROCODONE [Concomitant]
     Indication: PAIN
  14. NEXIUM [Concomitant]
     Dosage: 40 MG, UNK
  15. MIDODRINE HYDROCHLORIDE [Concomitant]
     Indication: BLOOD PRESSURE ABNORMAL
     Dosage: 5 MG, TID
  16. BLOOD TRANSFUSION, AUXILIARY PRODUCTS [Concomitant]
     Dosage: MULTIPLE
  17. BLOOD CELLS, PACKED HUMAN [Concomitant]
     Dosage: MULTIPLE TRANSFUSIONS FOR 2-3 WEEKS
  18. HEMATOPOIETIC GROWTH FACTORS [Concomitant]
     Dosage: PER DIALYSIS

REACTIONS (3)
  - FALL [None]
  - HIP FRACTURE [None]
  - MULTI-ORGAN FAILURE [None]
